FAERS Safety Report 8775523 (Version 3)
Quarter: 2013Q1

REPORT INFORMATION
  Report Type: Spontaneous
  Country: JP (occurrence: JP)
  Receive Date: 20120909
  Receipt Date: 20130102
  Transmission Date: 20140127
  Serious: Yes (Hospitalization)
  Sender: FDA-Public Use
  Company Number: JP-ABBOTT-12P-087-0974432-00

PATIENT
  Age: 37 None
  Sex: Female
  Weight: 41 kg

DRUGS (9)
  1. HUMIRA [Suspect]
     Indication: CROHN^S DISEASE
     Route: 058
     Dates: start: 20110831, end: 20110831
  2. HUMIRA [Suspect]
     Route: 058
     Dates: start: 20110914, end: 20110914
  3. HUMIRA [Suspect]
     Route: 058
     Dates: start: 20110928, end: 20120704
  4. HUMIRA [Suspect]
     Dates: start: 20120919
  5. MESALAZINE [Concomitant]
     Indication: PRODUCT USED FOR UNKNOWN INDICATION
     Route: 048
  6. AZATHIOPRINE [Concomitant]
     Route: 048
  7. CLOSTRIDIUM BUTYRICUM [Concomitant]
     Route: 048
     Dates: start: 20120817
  8. PREDNISOLONE SODIUM PHOSPHATE [Concomitant]
     Route: 054
     Dates: start: 20111130, end: 20120208
  9. PARENTERAL NUTRITION [Concomitant]
     Route: 048

REACTIONS (3)
  - Large intestinal stenosis [Recovered/Resolved]
  - Pyrexia [Unknown]
  - Abdominal pain [Unknown]
